FAERS Safety Report 17780502 (Version 1)
Quarter: 2020Q2

REPORT INFORMATION
  Report Type: Spontaneous
  Country: CN (occurrence: CN)
  Receive Date: 20200514
  Receipt Date: 20200514
  Transmission Date: 20200714
  Serious: Yes (Hospitalization)
  Sender: FDA-Public Use
  Company Number: CN-BAXTER-2020BAX009789

PATIENT
  Age: 20 Year
  Sex: Female
  Weight: 70 kg

DRUGS (14)
  1. ENDOXAN [Suspect]
     Active Substance: CYCLOPHOSPHAMIDE
     Dosage: DOE RE-INTRODUCED, CYCLOPHOSPHAMIDE + GLUCOSE (GS)
     Route: 041
  2. 5% GLUCOSE  INJECTION [Suspect]
     Active Substance: DEXTROSE
     Indication: MEDICATION DILUTION
     Dosage: VAC PROTOCOL, D1-2, CYCLOPHOSPHAMIDE 1 G + GLUCOSE (GS)
     Route: 041
     Dates: start: 20200407, end: 20200408
  3. 5% GLUCOSE  INJECTION [Suspect]
     Active Substance: DEXTROSE
     Dosage: VAC PROTOCOL, D1 DOXORUBICIN HYDROCHLORIDE LIPOSOME 40 MG + GLUCOSE (GS)
     Route: 041
     Dates: start: 20200407, end: 20200407
  4. 5% GLUCOSE  INJECTION [Suspect]
     Active Substance: DEXTROSE
     Dosage: DOSE RE-INTRODUCED, DOXORUBICIN HYDROCHLORIDE LIPOSOME + GLUCOSE (GS)
     Route: 041
  5. 0.9% SODIUM CHLORIDE INJECTION [Suspect]
     Active Substance: SODIUM CHLORIDE
     Indication: MEDICATION DILUTION
     Dosage: VAC PROTOCOL, D1, VINDESINE SULFATE 2 MG + SODIUM CHLORIDE (NS)
     Route: 041
     Dates: start: 20200407, end: 20200407
  6. 0.9% SODIUM CHLORIDE INJECTION [Suspect]
     Active Substance: SODIUM CHLORIDE
     Dosage: DOSE RE-INTRODUCED, VINDESINE SULFATE + SODIUM CHLORIDE (NS)
     Route: 041
  7. ADRIAMYCIN [Suspect]
     Active Substance: DOXORUBICIN HYDROCHLORIDE
     Indication: EWING^S SARCOMA
     Dosage: VAC PROTOCOL, D1, DOXORUBICIN HYDROCHLORIDE LIPOSOME + GLUCOSE (GS) 500 ML
     Route: 041
     Dates: start: 20200407, end: 20200407
  8. ADRIAMYCIN [Suspect]
     Active Substance: DOXORUBICIN HYDROCHLORIDE
     Dosage: DOSE RE-INTRODUCED, DOXORUBICIN HYDROCHLORIDE LIPOSOME + GLUCOSE (GS)
     Route: 041
  9. ADRIAMYCIN [Suspect]
     Active Substance: DOXORUBICIN HYDROCHLORIDE
     Dosage: VAC PROTOCOL, D 2, DOXORUBICIN HYDROCHLORIDE LIPOSOME + GLUCOSE (GS) 500 ML
     Route: 041
     Dates: start: 20200408, end: 20200408
  10. VINDESINE SULFATE [Suspect]
     Active Substance: VINDESINE SULFATE
     Indication: EWING^S SARCOMA
     Dosage: VAC PROTOCOL, D1, VINDESINE SULFATE + SODIUM CHLORIDE (NS) 500 ML
     Route: 041
     Dates: start: 20200407, end: 20200407
  11. VINDESINE SULFATE [Suspect]
     Active Substance: VINDESINE SULFATE
     Dosage: DOSE RE-INTRODUCED, VINDESINE SULFATE + SODIUM CHLORIDE (NS)
     Route: 041
  12. 5% GLUCOSE  INJECTION [Suspect]
     Active Substance: DEXTROSE
     Dosage: DOE RE-INTRODUCED, CYCLOPHOSPHAMIDE + GLUCOSE (GS)
     Route: 041
  13. ENDOXAN [Suspect]
     Active Substance: CYCLOPHOSPHAMIDE
     Indication: EWING^S SARCOMA
     Dosage: VAC PROTOCOL, D1-2, CYCLOPHOSPHAMIDE + GLUCOSE (GS) 500 ML
     Route: 041
     Dates: start: 20200407, end: 20200408
  14. 5% GLUCOSE  INJECTION [Suspect]
     Active Substance: DEXTROSE
     Dosage: VAC PROTOCOL, D 2 DOXORUBICIN HYDROCHLORIDE LIPOSOME 50 MG + GLUCOSE (GS)
     Route: 041
     Dates: start: 20200408, end: 20200408

REACTIONS (1)
  - Bone marrow failure [Recovering/Resolving]

NARRATIVE: CASE EVENT DATE: 20200421
